FAERS Safety Report 11459641 (Version 2)
Quarter: 2015Q3

REPORT INFORMATION
  Report Type: Report from Study
  Country: TW (occurrence: TW)
  Receive Date: 20150904
  Receipt Date: 20150928
  Transmission Date: 20151125
  Serious: Yes (Life-Threatening, Hospitalization)
  Sender: FDA-Public Use
  Company Number: TW-CELGENE-TWN-2015086394

PATIENT
  Age: 77 Year
  Sex: Male
  Weight: 77 kg

DRUGS (2)
  1. REVLIMID [Suspect]
     Active Substance: LENALIDOMIDE
     Route: 048
     Dates: end: 20150827
  2. REVLIMID [Suspect]
     Active Substance: LENALIDOMIDE
     Indication: HEPATOCELLULAR CARCINOMA
     Route: 048
     Dates: start: 20150524

REACTIONS (3)
  - Febrile neutropenia [Recovered/Resolved]
  - Gout [Not Recovered/Not Resolved]
  - Cellulitis [Recovered/Resolved]

NARRATIVE: CASE EVENT DATE: 20150826
